FAERS Safety Report 7831863-5 (Version None)
Quarter: 2011Q4

REPORT INFORMATION
  Report Type: 
  Country: None (occurrence: None)
  Receive Date: 20111021
  Receipt Date: 20111013
  Transmission Date: 20120403
  Serious: Yes (Hospitalization)
  Sender: FDA-Public Use
  Company Number: US-US-EMD SERONO, INC.-7089666

PATIENT
  Sex: Female

DRUGS (5)
  1. REBIF [Suspect]
     Indication: PRODUCT USED FOR UNKNOWN INDICATION
     Route: 058
     Dates: start: 20110807, end: 20110928
  2. HEADACHE MEDICATION [Concomitant]
     Indication: HEADACHE
  3. LYRICA [Concomitant]
  4. CELEBREX [Concomitant]
  5. CELEXA [Concomitant]

REACTIONS (3)
  - SWELLING FACE [None]
  - STAPHYLOCOCCAL INFECTION [None]
  - PLATELET COUNT DECREASED [None]
